FAERS Safety Report 25131840 (Version 1)
Quarter: 2025Q1

REPORT INFORMATION
  Report Type: Spontaneous
  Country: US (occurrence: US)
  Receive Date: 20250327
  Receipt Date: 20250327
  Transmission Date: 20250408
  Serious: No
  Sender: BIOMARIN
  Company Number: US-BIOMARINAP-US-2025-164848

PATIENT

DRUGS (1)
  1. NAGLAZYME [Suspect]
     Active Substance: GALSULFASE
     Indication: Product used for unknown indication
     Dosage: 55 MILLIGRAM, QW
     Route: 042

REACTIONS (4)
  - Dermal cyst [Unknown]
  - Erythema [Unknown]
  - Pain [Unknown]
  - Skin swelling [Unknown]

NARRATIVE: CASE EVENT DATE: 20250101
